FAERS Safety Report 9381908 (Version 1)
Quarter: 2013Q3

REPORT INFORMATION
  Report Type: Spontaneous
  Country: CH (occurrence: CH)
  Receive Date: 20130703
  Receipt Date: 20130703
  Transmission Date: 20140515
  Serious: Yes (Hospitalization)
  Sender: FDA-Public Use
  Company Number: PHHY2013CH067588

PATIENT
  Sex: Female
  Weight: 2.38 kg

DRUGS (3)
  1. ZOLDORM [Suspect]
     Dosage: 10 MG, UNK
     Route: 064
     Dates: end: 20130314
  2. CITALOPRAM [Interacting]
     Dosage: 20 MG, UNK
     Route: 064
     Dates: end: 20130314
  3. TEMESTA [Interacting]
     Dosage: 3 MG, UNK
     Route: 064
     Dates: end: 20130314

REACTIONS (4)
  - Neonatal tachypnoea [Recovered/Resolved]
  - Oxygen saturation decreased [Recovered/Resolved]
  - Hypoglycaemia neonatal [Recovered/Resolved]
  - Drug withdrawal syndrome neonatal [Recovered/Resolved]
